FAERS Safety Report 7407473-0 (Version None)
Quarter: 2011Q2

REPORT INFORMATION
  Report Type: 
  Country: None (occurrence: None)
  Receive Date: 20110411
  Receipt Date: 20110329
  Transmission Date: 20111010
  Serious: Yes (Other)
  Sender: FDA-Public Use
  Company Number: NL-MYLANLABS-2011S1006466

PATIENT
  Age: 48 Year
  Sex: Male

DRUGS (3)
  1. VENLAFAXINE HCL [Suspect]
     Indication: DEPRESSION
     Dosage: 1 X DAAGS 1 CAPSULE
     Route: 048
     Dates: start: 20110307, end: 20110309
  2. SUCRALFAAT [Concomitant]
     Indication: PRODUCT USED FOR UNKNOWN INDICATION
     Dosage: 1 TOT 4 X DAAGS 1 ZAKJE
     Route: 048
     Dates: start: 20101019
  3. NAPROXEN MERCK [Concomitant]
     Indication: PRODUCT USED FOR UNKNOWN INDICATION
     Dosage: 1 TOT 3 X DAAGS 1 TABLET
     Route: 048
     Dates: start: 19981012

REACTIONS (2)
  - NIGHTMARE [None]
  - HALLUCINATION [None]
